FAERS Safety Report 23732004 (Version 4)
Quarter: 2025Q1

REPORT INFORMATION
  Report Type: Spontaneous
  Country: IN (occurrence: IN)
  Receive Date: 20240411
  Receipt Date: 20250313
  Transmission Date: 20250408
  Serious: Yes (Hospitalization, Other)
  Sender: PFIZER
  Company Number: IN-PFIZER INC-PV202400045860

PATIENT
  Age: 65 Year
  Sex: Female

DRUGS (3)
  1. LORLATINIB [Suspect]
     Active Substance: LORLATINIB
     Dosage: 50 MG, 1X/DAY
     Route: 048
  2. LORLATINIB [Suspect]
     Active Substance: LORLATINIB
     Dates: start: 20240201
  3. LORLATINIB [Suspect]
     Active Substance: LORLATINIB
     Dates: start: 20241008

REACTIONS (2)
  - Infection [Unknown]
  - Dyspnoea [Unknown]
